FAERS Safety Report 14821569 (Version 1)
Quarter: 2018Q2

REPORT INFORMATION
  Report Type: Spontaneous
  Country: US (occurrence: US)
  Receive Date: 20180427
  Receipt Date: 20180427
  Transmission Date: 20180711
  Serious: No
  Sender: FDA-Public Use
  Company Number: US-BEH-2018090127

PATIENT
  Sex: Male
  Weight: 90.7 kg

DRUGS (11)
  1. SODIUM CHLORIDE. [Concomitant]
     Active Substance: SODIUM CHLORIDE
  2. ADVIL (MEFENAMIC ACID) [Concomitant]
     Active Substance: MEFENAMIC ACID
  3. HAEGARDA [Suspect]
     Active Substance: HUMAN C1-ESTERASE INHIBITOR
     Indication: PROPHYLAXIS
     Dosage: 7000 IU, TOT
     Route: 058
  4. ASPIRIN. [Concomitant]
     Active Substance: ASPIRIN
  5. HEPARIN [Concomitant]
     Active Substance: HEPARIN SODIUM
  6. STERILE WATER [Concomitant]
     Active Substance: WATER
  7. EPINEPHRINE. [Concomitant]
     Active Substance: EPINEPHRINE
  8. DIPHENHYDRAMINE. [Concomitant]
     Active Substance: DIPHENHYDRAMINE
  9. HAEGARDA [Suspect]
     Active Substance: HUMAN C1-ESTERASE INHIBITOR
     Indication: HEREDITARY ANGIOEDEMA
     Dosage: 7000 IU, EVERY 3-4 DAYS
     Route: 058
     Dates: start: 20180108
  10. ANDROGEL [Concomitant]
     Active Substance: TESTOSTERONE
  11. PANTOPRAZOLE [Concomitant]
     Active Substance: PANTOPRAZOLE

REACTIONS (1)
  - Nasopharyngitis [Unknown]
